FAERS Safety Report 6491067-8 (Version None)
Quarter: 2009Q4

REPORT INFORMATION
  Report Type: 
  Country: None (occurrence: None)
  Receive Date: 20091211
  Receipt Date: 20091201
  Transmission Date: 20100525
  Serious: Yes (Hospitalization)
  Sender: FDA-Public Use
  Company Number: BE-ROCHE-672090

PATIENT
  Age: 15 Year
  Sex: Male

DRUGS (1)
  1. ROACCUTANE [Suspect]
     Indication: ACNE
     Dosage: REPORTED START DATE: END OCT 2009, STOP DATE: END NOV 2009
     Route: 048
     Dates: start: 20091001, end: 20091101

REACTIONS (1)
  - URINARY RETENTION [None]
